FAERS Safety Report 24441290 (Version 2)
Quarter: 2024Q4

REPORT INFORMATION
  Report Type: Report from Study
  Country: US (occurrence: US)
  Receive Date: 20241016
  Receipt Date: 20241017
  Transmission Date: 20250114
  Serious: No
  Sender: ROCHE
  Company Number: US-ROCHE-3479096

PATIENT
  Age: 23 Year
  Sex: Male

DRUGS (2)
  1. HEMLIBRA [Suspect]
     Active Substance: EMICIZUMAB-KXWH
     Indication: Factor VIII deficiency
     Dosage: INJECT 1.5MG/KG (75MG) SUBCUTANEOUSLY EVERY 7 DAY(S) NEED TO HAVE SPLIT INTO TWO INJECTIONS- 0.4ML (
     Route: 058
  2. HEMLIBRA [Suspect]
     Active Substance: EMICIZUMAB-KXWH
     Dosage: INJECT 1.5MG/KG (75MG) SUBCUTANEOUSLY EVERY 7 DAY(S). NEED TO HAVE SPLIT INTO TWO INJECTIONS- 0.4ML
     Route: 058

REACTIONS (2)
  - Expired product administered [Unknown]
  - No adverse event [Unknown]
